FAERS Safety Report 4750586-2 (Version None)
Quarter: 2005Q3

REPORT INFORMATION
  Report Type: 
  Country: None (occurrence: None)
  Receive Date: 20050823
  Receipt Date: 20050817
  Transmission Date: 20060218
  Serious: Yes (Hospitalization)
  Sender: FDA-Public Use
  Company Number: PHBS2005FI11929

PATIENT
  Age: 35 Year
  Sex: Female

DRUGS (1)
  1. LEPONEX [Suspect]
     Route: 065

REACTIONS (1)
  - CEREBELLAR INFARCTION [None]
